FAERS Safety Report 7804152 (Version 5)
Quarter: 2016Q2

REPORT INFORMATION
  Report Type: Report from Study
  Country: US (occurrence: US)
  Receive Date: 20110208
  Receipt Date: 20160616
  Transmission Date: 20160815
  Serious: Yes (Other)
  Sender: FDA-Public Use
  Company Number: US-ASTRAZENECA-2010SE02873

PATIENT
  Age: 26849 Day
  Sex: Female
  Weight: 98.9 kg

DRUGS (9)
  1. NEXIUM [Suspect]
     Active Substance: ESOMEPRAZOLE MAGNESIUM
     Indication: GASTROOESOPHAGEAL REFLUX DISEASE
     Route: 048
     Dates: start: 19890101
  2. NASONEX [Concomitant]
     Active Substance: MOMETASONE FUROATE
     Indication: ASTHMA
  3. NEXIUM [Suspect]
     Active Substance: ESOMEPRAZOLE MAGNESIUM
     Indication: DYSPHAGIA
     Route: 048
     Dates: start: 20160201
  4. PRILOSEC [Suspect]
     Active Substance: OMEPRAZOLE MAGNESIUM
     Route: 048
  5. TOPROL XL [Suspect]
     Active Substance: METOPROLOL SUCCINATE
     Dosage: 25.0MG UNKNOWN
     Route: 048
  6. NEXIUM [Suspect]
     Active Substance: ESOMEPRAZOLE MAGNESIUM
     Indication: DYSPHAGIA
     Route: 048
     Dates: start: 19890101
  7. NEXIUM [Suspect]
     Active Substance: ESOMEPRAZOLE MAGNESIUM
     Indication: GASTROOESOPHAGEAL REFLUX DISEASE
     Route: 048
     Dates: start: 20160201
  8. FLOVENT DISKUS [Concomitant]
     Active Substance: FLUTICASONE PROPIONATE
     Indication: ASTHMA
  9. HYDROCHLOROTHIAZE [Concomitant]
     Indication: FLUID RETENTION

REACTIONS (10)
  - Abdominal pain upper [Unknown]
  - Metastases to lymph nodes [Unknown]
  - Gastrooesophageal reflux disease [Unknown]
  - Musculoskeletal pain [Unknown]
  - Asthma [Unknown]
  - Odynophagia [Unknown]
  - Breast cancer [Unknown]
  - Breast disorder [Unknown]
  - Infection [Unknown]
  - Drug dose omission [Unknown]

NARRATIVE: CASE EVENT DATE: 20090319
